FAERS Safety Report 9458624 (Version 3)
Quarter: 2013Q4

REPORT INFORMATION
  Report Type: Report from Study
  Country: FR (occurrence: FR)
  Receive Date: 20130814
  Receipt Date: 20131223
  Transmission Date: 20140711
  Serious: Yes (Hospitalization)
  Sender: FDA-Public Use
  Company Number: PHHO2013FR002372

PATIENT
  Sex: 0

DRUGS (43)
  1. IMATINIB [Suspect]
     Indication: ACUTE LYMPHOCYTIC LEUKAEMIA
     Dosage: 90 MG, QD
     Route: 048
     Dates: start: 20130115, end: 20130616
  2. IMATINIB [Suspect]
     Dosage: 400 MG, QD
     Route: 048
     Dates: end: 20130626
  3. IMATINIB [Suspect]
     Dosage: 400 MG, QD
     Route: 048
     Dates: start: 20130703
  4. IMATINIB [Suspect]
     Dosage: UNK
     Route: 048
     Dates: start: 20130827, end: 20131007
  5. IMATINIB [Suspect]
     Dosage: 400 MG/DAY IN 1 DOSE
     Route: 048
     Dates: start: 20131127, end: 20131203
  6. IMATINIB [Suspect]
     Dosage: 300 MG AND 400 MG ALTERNATIVELY
     Route: 048
     Dates: start: 20131215
  7. MTX [Suspect]
     Indication: ACUTE LYMPHOCYTIC LEUKAEMIA
     Dosage: 12 MG, UNK
     Route: 048
     Dates: start: 20130227
  8. MTX [Suspect]
     Dosage: 25 MG/WEEK IN 1 DOSE
     Route: 048
     Dates: start: 20131127, end: 20131203
  9. 6-MP [Suspect]
     Indication: ACUTE LYMPHOCYTIC LEUKAEMIA
     Dosage: 62.5 MG/DAY IN 1 DOSE
     Route: 048
     Dates: start: 20131127, end: 20131203
  10. 6-MP [Suspect]
     Dosage: 50 MG/DAY IN 1 DOSE
     Route: 048
     Dates: start: 20131215
  11. DEXAMETHASONE [Concomitant]
     Indication: ACUTE LYMPHOCYTIC LEUKAEMIA
     Dosage: 4 MG, TID
     Route: 048
  12. DEXAMETHASONE [Concomitant]
     Dosage: 2 MG, TID
     Route: 048
  13. DEXAMETHASONE [Concomitant]
     Dosage: 1.25 MG, BID
     Route: 048
  14. DEXAMETHASONE [Concomitant]
     Dosage: 1.25 MG, QD
     Route: 048
  15. DEXAMETHASONE [Concomitant]
     Dosage: 4.2 MG, TID
     Route: 048
     Dates: start: 20130827, end: 20130916
  16. DEXAMETHASONE [Concomitant]
     Dosage: 9.1 MG, TID
     Route: 048
     Dates: start: 20130917, end: 20130920
  17. DEXAMETHASONE [Concomitant]
     Dosage: 2.36 MG, QD
     Route: 048
     Dates: start: 20130921, end: 20130924
  18. DEXAMETHASONE [Concomitant]
     Dosage: 1.2 MG, QD
     Route: 048
     Dates: start: 20130925, end: 20130927
  19. VINCRISTINE [Concomitant]
     Indication: ACUTE LYMPHOCYTIC LEUKAEMIA
     Dosage: 1.9 MG, QD
     Route: 042
     Dates: start: 20130903
  20. VINCRISTINE [Concomitant]
     Dosage: 1.85 MG, QD
     Route: 042
     Dates: start: 20130910
  21. VINCRISTINE [Concomitant]
     Dosage: 1.9 MG, QD
     Route: 042
     Dates: start: 20130923
  22. ADRIAMYCIN [Concomitant]
     Indication: ACUTE LYMPHOCYTIC LEUKAEMIA
     Dosage: 32 MG, QD
     Dates: start: 20130903
  23. ADRIAMYCIN [Concomitant]
     Dosage: 31 MG, QD
     Dates: start: 20130910
  24. ADRIAMYCIN [Concomitant]
     Dosage: UNK
     Dates: start: 20130923
  25. L-ASP [Concomitant]
     Indication: ACUTE LYMPHOCYTIC LEUKAEMIA
     Dosage: 31000 IU, UNK
     Dates: start: 20130304
  26. L-ASP [Concomitant]
     Dosage: 12600 IU, UNK
     Dates: start: 20130903
  27. L-ASP [Concomitant]
     Dosage: 12600 IU, UNK
     Dates: start: 20130906
  28. AUGMENTIN [Concomitant]
     Indication: COUGH
     Dosage: UNK
     Dates: start: 20130606, end: 201306
  29. BACTRIM [Concomitant]
     Indication: PROPHYLAXIS
     Dosage: 800 MG, QD
     Route: 042
     Dates: start: 20130227, end: 20130227
  30. BACTRIM [Concomitant]
     Indication: BACTERIAL INFECTION
     Dosage: 800 MG, QD
     Route: 042
     Dates: start: 20130301, end: 20130301
  31. BACTRIM [Concomitant]
     Dosage: 800 MG, QD
     Route: 042
     Dates: start: 20130308, end: 20130308
  32. BACTRIM [Concomitant]
     Dosage: 800 MG, QW3
     Route: 048
     Dates: start: 20130606
  33. CYTARABINE [Concomitant]
     Dosage: 400 MG, UNK
     Route: 048
  34. ZOPHREN [Concomitant]
     Dosage: 16 ^8 MG BEFORED DECHALLENGING^
     Route: 042
     Dates: start: 20130227, end: 20130304
  35. METHYLPREDNISOLONE [Concomitant]
     Dosage: 152 MG, UNK
     Route: 048
  36. CPM [Concomitant]
     Dosage: 250 MG, (250 MG X 5 DOSES)1250 MG
     Dates: start: 20130228, end: 20130302
  37. NUBAIN [Concomitant]
     Dosage: 28 MG, IVSE 24 H
     Dates: start: 20131205, end: 20131205
  38. ATARAX [Concomitant]
     Dosage: 25 MG, QD
     Dates: start: 20130302, end: 20130303
  39. UROMITEXAN [Concomitant]
     Dosage: 260 MG, QD^ USE^
     Dates: start: 20120228, end: 20130602
  40. PLITICAN [Concomitant]
     Indication: VOMITING
     Dosage: 50 MG, UNK
     Route: 042
     Dates: start: 20130301, end: 20130302
  41. PLITICAN [Concomitant]
     Dosage: 50 UNK, UNK
     Route: 042
     Dates: start: 20130304, end: 20130304
  42. DAKIN^S SOLUTION [Concomitant]
     Indication: PARONYCHIA
     Dosage: UNK
     Dates: start: 20101003, end: 20101010
  43. DIFFU K [Concomitant]
     Indication: HYPOKALAEMIA
     Dosage: 600 MG, Q8H
     Route: 048
     Dates: start: 20131204

REACTIONS (8)
  - Febrile bone marrow aplasia [Recovering/Resolving]
  - Anaemia [Recovering/Resolving]
  - Thrombocytopenia [Recovering/Resolving]
  - Herpes virus infection [Recovering/Resolving]
  - Erythema multiforme [Recovering/Resolving]
  - Mucosal inflammation [Recovered/Resolved]
  - Hypoxia [Recovering/Resolving]
  - Lung disorder [Recovering/Resolving]
